FAERS Safety Report 21646541 (Version 1)
Quarter: 2022Q4

REPORT INFORMATION
  Report Type: Spontaneous
  Country: DK (occurrence: DK)
  Receive Date: 20221126
  Receipt Date: 20221126
  Transmission Date: 20230113
  Serious: Yes (Hospitalization)
  Sender: FDA-Public Use
  Company Number: None

PATIENT
  Age: 38 Year
  Sex: Male

DRUGS (1)
  1. ATORVASTATIN [Suspect]
     Active Substance: ATORVASTATIN
     Indication: Hypercholesterolaemia
     Dosage: STRENGTH AND UNIT DOSE: 80 MG, FREQ TIME: 1 DAY
     Dates: end: 202205

REACTIONS (5)
  - Libido decreased [Unknown]
  - Extremity necrosis [Recovered/Resolved]
  - Pain in extremity [Recovered/Resolved]
  - Depressed mood [Recovered/Resolved]
  - Myalgia [Recovered/Resolved]

NARRATIVE: CASE EVENT DATE: 20190101
